FAERS Safety Report 18791590 (Version 1)
Quarter: 2021Q1

REPORT INFORMATION
  Report Type: Spontaneous
  Country: US (occurrence: US)
  Receive Date: 20210126
  Receipt Date: 20210126
  Transmission Date: 20210419
  Serious: No
  Sender: FDA-Public Use
  Company Number: US-PERRIGO-20US016631

PATIENT
  Age: 1 Year
  Sex: Female
  Weight: 13.61 kg

DRUGS (1)
  1. IBUPROFEN. [Suspect]
     Active Substance: IBUPROFEN
     Indication: EXPOSURE VIA EYE CONTACT
     Dosage: UNKNOWN, SNGLE
     Route: 047
     Dates: start: 20201117, end: 20201117

REACTIONS (1)
  - Exposure via eye contact [Recovered/Resolved]

NARRATIVE: CASE EVENT DATE: 20201117
